FAERS Safety Report 5123393-9 (Version None)
Quarter: 2006Q4

REPORT INFORMATION
  Report Type: 
  Country: None (occurrence: None)
  Receive Date: 20061005
  Receipt Date: 20060925
  Transmission Date: 20070319
  Serious: Yes (Hospitalization)
  Sender: FDA-Public Use
  Company Number: 2006BI012412

PATIENT
  Age: 51 Year
  Sex: Female
  Weight: 67 kg

DRUGS (7)
  1. AVONEX [Suspect]
     Indication: MULTIPLE SCLEROSIS
     Dosage: 30 UG; QW; IM; SEE IMAGE
     Route: 030
     Dates: start: 20030501, end: 20060512
  2. AVONEX [Suspect]
     Indication: MULTIPLE SCLEROSIS
     Dosage: 30 UG; QW; IM; SEE IMAGE
     Route: 030
     Dates: start: 20060901
  3. SYMBICORT TURBUHALER ^DRACO^ [Concomitant]
  4. LEVOTHYROXINE SODIUM [Concomitant]
  5. ESOMEPRAZOLE MAGNESIUM [Concomitant]
  6. CIMICIFUGA RACEMOSA [Concomitant]
  7. IBUPROFEN [Concomitant]

REACTIONS (12)
  - BACTERIAL INFECTION [None]
  - DRUG RESISTANCE [None]
  - ERYTHEMA [None]
  - HAEMANGIOMA [None]
  - HAEMOPTYSIS [None]
  - HEPATOMEGALY [None]
  - HYPERSENSITIVITY [None]
  - INFLAMMATION [None]
  - LYMPHADENOPATHY [None]
  - MICROCYTIC ANAEMIA [None]
  - PNEUMONIA [None]
  - RESPIRATORY MONILIASIS [None]
